FAERS Safety Report 23736146 (Version 1)
Quarter: 2024Q2

REPORT INFORMATION
  Report Type: Spontaneous
  Country: JP (occurrence: JP)
  Receive Date: 20240412
  Receipt Date: 20240412
  Transmission Date: 20240716
  Serious: Yes (Other)
  Sender: FDA-Public Use
  Company Number: JP-MYLANLABS-2024M1032154

PATIENT
  Age: 6 Decade
  Sex: Female

DRUGS (39)
  1. LETROZOLE [Suspect]
     Active Substance: LETROZOLE
     Indication: Oestrogen receptor assay positive
     Dosage: FOR 3 MONTHS
     Route: 065
  2. LETROZOLE [Suspect]
     Active Substance: LETROZOLE
     Indication: Progesterone receptor assay positive
  3. LETROZOLE [Suspect]
     Active Substance: LETROZOLE
     Indication: Human epidermal growth factor receptor negative
  4. LETROZOLE [Suspect]
     Active Substance: LETROZOLE
     Indication: Breast cancer metastatic
  5. GEMCITABINE [Suspect]
     Active Substance: GEMCITABINE
     Indication: Oestrogen receptor assay positive
     Dosage: ONE COURSE
     Route: 065
  6. GEMCITABINE [Suspect]
     Active Substance: GEMCITABINE
     Indication: Progesterone receptor assay positive
  7. GEMCITABINE [Suspect]
     Active Substance: GEMCITABINE
     Indication: Human epidermal growth factor receptor negative
  8. GEMCITABINE [Suspect]
     Active Substance: GEMCITABINE
     Indication: Breast cancer metastatic
  9. VINORELBINE [Suspect]
     Active Substance: VINORELBINE TARTRATE
     Indication: Oestrogen receptor assay positive
     Dosage: ONE COURSE
     Route: 065
  10. VINORELBINE [Suspect]
     Active Substance: VINORELBINE TARTRATE
     Indication: Progesterone receptor assay positive
  11. VINORELBINE [Suspect]
     Active Substance: VINORELBINE TARTRATE
     Indication: Human epidermal growth factor receptor negative
  12. VINORELBINE [Suspect]
     Active Substance: VINORELBINE TARTRATE
     Indication: Breast cancer metastatic
  13. CAPECITABINE [Suspect]
     Active Substance: CAPECITABINE
     Indication: Oestrogen receptor assay positive
     Dosage: ONE COURSE
     Route: 065
  14. CAPECITABINE [Suspect]
     Active Substance: CAPECITABINE
     Indication: Progesterone receptor assay positive
  15. CAPECITABINE [Suspect]
     Active Substance: CAPECITABINE
     Indication: Human epidermal growth factor receptor negative
  16. CAPECITABINE [Suspect]
     Active Substance: CAPECITABINE
     Indication: Breast cancer metastatic
  17. NIVOLUMAB [Suspect]
     Active Substance: NIVOLUMAB
     Indication: Oestrogen receptor assay positive
     Dosage: FOR 6 MONTHS
     Route: 065
  18. NIVOLUMAB [Suspect]
     Active Substance: NIVOLUMAB
     Indication: Progesterone receptor assay positive
  19. NIVOLUMAB [Suspect]
     Active Substance: NIVOLUMAB
     Indication: Human epidermal growth factor receptor negative
  20. NIVOLUMAB [Suspect]
     Active Substance: NIVOLUMAB
     Indication: Breast cancer metastatic
  21. ERIBULIN [Suspect]
     Active Substance: ERIBULIN
     Indication: Oestrogen receptor assay positive
     Dosage: FOR 9 MONTHS
     Route: 065
  22. ERIBULIN [Suspect]
     Active Substance: ERIBULIN
     Indication: Progesterone receptor assay positive
  23. ERIBULIN [Suspect]
     Active Substance: ERIBULIN
     Indication: Human epidermal growth factor receptor negative
  24. ERIBULIN [Suspect]
     Active Substance: ERIBULIN
     Indication: Breast cancer metastatic
  25. ABEMACICLIB [Suspect]
     Active Substance: ABEMACICLIB
     Indication: Oestrogen receptor assay positive
     Dosage: WITH HIGH DOSE FOR 3 MONTHS ~
     Route: 065
  26. ABEMACICLIB [Suspect]
     Active Substance: ABEMACICLIB
     Indication: Progesterone receptor assay positive
  27. ABEMACICLIB [Suspect]
     Active Substance: ABEMACICLIB
     Indication: Human epidermal growth factor receptor negative
  28. ABEMACICLIB [Suspect]
     Active Substance: ABEMACICLIB
     Indication: Breast cancer metastatic
  29. FULVESTRANT [Suspect]
     Active Substance: FULVESTRANT
     Indication: Oestrogen receptor assay positive
     Dosage: FOR 6 MONTHS
     Route: 065
  30. FULVESTRANT [Suspect]
     Active Substance: FULVESTRANT
     Indication: Progesterone receptor assay positive
  31. FULVESTRANT [Suspect]
     Active Substance: FULVESTRANT
     Indication: Human epidermal growth factor receptor negative
  32. FULVESTRANT [Suspect]
     Active Substance: FULVESTRANT
     Indication: Breast cancer metastatic
  33. TOREMIFENE [Suspect]
     Active Substance: TOREMIFENE
     Indication: Oestrogen receptor assay positive
     Dosage: WITH HIGH DOSE FOR 3 MONTHS
     Route: 065
  34. TOREMIFENE [Suspect]
     Active Substance: TOREMIFENE
     Indication: Progesterone receptor assay positive
  35. TOREMIFENE [Suspect]
     Active Substance: TOREMIFENE
     Indication: Human epidermal growth factor receptor negative
  36. TOREMIFENE [Suspect]
     Active Substance: TOREMIFENE
     Indication: Breast cancer metastatic
  37. PACLITAXEL [Concomitant]
     Active Substance: PACLITAXEL
     Indication: Oestrogen receptor assay positive
     Route: 065
  38. BEVACIZUMAB [Concomitant]
     Active Substance: BEVACIZUMAB
     Indication: Oestrogen receptor assay positive
     Route: 065
  39. DENOSUMAB [Concomitant]
     Active Substance: DENOSUMAB
     Indication: Oestrogen receptor assay positive
     Route: 065

REACTIONS (1)
  - Drug ineffective [Unknown]
